FAERS Safety Report 6762908-1 (Version None)
Quarter: 2010Q2

REPORT INFORMATION
  Report Type: 
  Country: None (occurrence: None)
  Receive Date: 20100608
  Receipt Date: 20100608
  Transmission Date: 20101027
  Serious: Yes (Other)
  Sender: FDA-Public Use
  Company Number: None

PATIENT
  Age: 23 Year
  Sex: Female
  Weight: 45.8133 kg

DRUGS (1)
  1. TOPAMAX [Suspect]

REACTIONS (2)
  - CONDITION AGGRAVATED [None]
  - MIGRAINE WITH AURA [None]
